FAERS Safety Report 5129239-7 (Version None)
Quarter: 2006Q4

REPORT INFORMATION
  Report Type: 
  Country: None (occurrence: None)
  Receive Date: 20061011
  Receipt Date: 20060921
  Transmission Date: 20070319
  Serious: Yes (Hospitalization)
  Sender: FDA-Public Use
  Company Number: ZA200609006615

PATIENT
  Age: 71 Year
  Sex: Female

DRUGS (3)
  1. GEMZAR [Suspect]
     Indication: BREAST CANCER METASTATIC
     Dosage: 1.8 MG, OTHER, INTRAVENOUS
     Route: 042
     Dates: start: 20060529
  2. NAVELBINE ^ASTA MEDICA^ (VINORELBINE DITARTRATE) [Concomitant]
  3. NAVELBINE [Concomitant]

REACTIONS (2)
  - LIBIDO INCREASED [None]
  - THROMBOSIS [None]
